FAERS Safety Report 17773697 (Version 2)
Quarter: 2020Q2

REPORT INFORMATION
  Report Type: Spontaneous
  Country: US (occurrence: US)
  Receive Date: 20200512
  Receipt Date: 20200623
  Transmission Date: 20200714
  Serious: No
  Sender: FDA-Public Use
  Company Number: US-GLAXOSMITHKLINE-US2020075661

PATIENT
  Age: 57 Year
  Sex: Female

DRUGS (1)
  1. BENLYSTA [Suspect]
     Active Substance: BELIMUMAB
     Indication: PRODUCT USED FOR UNKNOWN INDICATION
     Dosage: EVERY MONTH
     Route: 042
     Dates: start: 2019

REACTIONS (5)
  - Ill-defined disorder [Unknown]
  - Pain in extremity [Unknown]
  - Neck pain [Unknown]
  - Myalgia [Unknown]
  - Product dose omission [Unknown]

NARRATIVE: CASE EVENT DATE: 20200420
